FAERS Safety Report 5449664-4 (Version None)
Quarter: 2007Q3

REPORT INFORMATION
  Report Type: 
  Country: None (occurrence: None)
  Receive Date: 20070910
  Receipt Date: 20070910
  Transmission Date: 20080115
  Serious: Yes (Death)
  Sender: FDA-Public Use
  Company Number: None

PATIENT
  Sex: Male
  Weight: 92.5338 kg

DRUGS (2)
  1. REVLIMID [Suspect]
     Indication: CHRONIC LYMPHOCYTIC LEUKAEMIA REFRACTORY
     Dosage: 25 MG ONCE EACH DAY ORAL
     Route: 048
     Dates: start: 20070105, end: 20070109
  2. PREDNISONE [Suspect]
     Indication: CHRONIC LYMPHOCYTIC LEUKAEMIA REFRACTORY
     Dosage: 20 MG ONCE EACH DAY ORAL
     Route: 048
     Dates: start: 20070105, end: 20070107

REACTIONS (19)
  - ABDOMINAL PAIN [None]
  - ASTHENIA [None]
  - BACK PAIN [None]
  - BLOOD LACTATE DEHYDROGENASE INCREASED [None]
  - CONDITION AGGRAVATED [None]
  - DRUG DOSE OMISSION [None]
  - GENERAL PHYSICAL HEALTH DETERIORATION [None]
  - HYPERPHOSPHATAEMIA [None]
  - HYPERURICAEMIA [None]
  - HYPOXIA [None]
  - LETHARGY [None]
  - LYMPHADENOPATHY [None]
  - LYMPHOCYTOSIS [None]
  - MEDICATION ERROR [None]
  - MENTAL STATUS CHANGES [None]
  - RENAL FAILURE ACUTE [None]
  - RESPIRATORY FAILURE [None]
  - TUMOUR LYSIS SYNDROME [None]
  - WHITE BLOOD CELL COUNT INCREASED [None]
